FAERS Safety Report 4439002-8 (Version None)
Quarter: 2004Q3

REPORT INFORMATION
  Report Type: 
  Country: None (occurrence: None)
  Receive Date: 20040901
  Receipt Date: 20040818
  Transmission Date: 20050211
  Serious: Yes (Other)
  Sender: FDA-Public Use
  Company Number: US-ROCHE-378168

PATIENT
  Age: 38 Year
  Sex: Female

DRUGS (3)
  1. VESANOID [Suspect]
     Route: 048
     Dates: start: 20040721
  2. IDARUBICIN HCL [Suspect]
     Route: 065
     Dates: start: 20040715
  3. FLUCONAZOLE [Suspect]
     Indication: PROPHYLAXIS
     Route: 048
     Dates: start: 20040802

REACTIONS (1)
  - DIPLOPIA [None]
